FAERS Safety Report 7829313-8 (Version None)
Quarter: 2011Q4

REPORT INFORMATION
  Report Type: 
  Country: None (occurrence: None)
  Receive Date: 20111020
  Receipt Date: 20111014
  Transmission Date: 20120403
  Serious: Yes (Hospitalization, Other)
  Sender: FDA-Public Use
  Company Number: US-AMGEN-USASP2011048631

PATIENT
  Age: 60 Year
  Sex: Male
  Weight: 92.517 kg

DRUGS (2)
  1. XGEVA [Suspect]
     Indication: PROSTATE CANCER METASTATIC
     Dosage: 120 MG, QMO
     Route: 058
     Dates: start: 20110510, end: 20110510
  2. XGEVA [Suspect]
     Dosage: 120 MG, QMO
     Route: 058
     Dates: start: 20110614, end: 20110614

REACTIONS (4)
  - TOOTHACHE [None]
  - BONE PAIN [None]
  - PAIN IN JAW [None]
  - CARDIAC DISORDER [None]
